FAERS Safety Report 16669731 (Version 1)
Quarter: 2019Q3

REPORT INFORMATION
  Report Type: Report from Study
  Country: US (occurrence: US)
  Receive Date: 20190805
  Receipt Date: 20190805
  Transmission Date: 20191004
  Serious: Yes (Hospitalization, Other)
  Sender: FDA-Public Use
  Company Number: US-GILEAD-2019-0422049

PATIENT
  Age: 18 Year
  Sex: Male
  Weight: 54.88 kg

DRUGS (1)
  1. AZTREONAM LYSINE [Suspect]
     Active Substance: AZTREONAM LYSINE
     Indication: CYSTIC FIBROSIS
     Dosage: 75 MG, TID 28 DAYS ON/OFF
     Route: 055
     Dates: start: 20190131

REACTIONS (2)
  - Cystic fibrosis respiratory infection suppression [Recovered/Resolved]
  - Cystic fibrosis [Recovered/Resolved]

NARRATIVE: CASE EVENT DATE: 20190708
